FAERS Safety Report 18194270 (Version 1)
Quarter: 2020Q3

REPORT INFORMATION
  Report Type: Report from Study
  Country: US (occurrence: US)
  Receive Date: 20200825
  Receipt Date: 20200825
  Transmission Date: 20201103
  Serious: Yes (Hospitalization)
  Sender: FDA-Public Use
  Company Number: US-ACTELION-A-US2019-185976

PATIENT
  Age: 79 Year
  Sex: Female
  Weight: 65.76 kg

DRUGS (3)
  1. OPSUMIT [Suspect]
     Active Substance: MACITENTAN
     Indication: PULMONARY ARTERIAL HYPERTENSION
     Dosage: 10 MG, QD
     Route: 048
     Dates: start: 20140609
  2. COUMADIN [Concomitant]
     Active Substance: WARFARIN SODIUM
  3. ELIQUIS [Concomitant]
     Active Substance: APIXABAN

REACTIONS (9)
  - Knee operation [Unknown]
  - Arthralgia [Unknown]
  - Product dose omission issue [Unknown]
  - Dyspnoea [Unknown]
  - Pollakiuria [Unknown]
  - Vomiting projectile [Unknown]
  - Fatigue [Unknown]
  - Thrombosis [Unknown]
  - Depression [Unknown]

NARRATIVE: CASE EVENT DATE: 20200122
